FAERS Safety Report 24402147 (Version 1)
Quarter: 2024Q4

REPORT INFORMATION
  Report Type: Spontaneous
  Country: US (occurrence: US)
  Receive Date: 20241007
  Receipt Date: 20241007
  Transmission Date: 20250115
  Serious: Yes (Death, Other)
  Sender: AMGEN
  Company Number: US-AMGEN-USASP2024195716

PATIENT

DRUGS (5)
  1. PREDNISONE [Suspect]
     Active Substance: PREDNISONE
     Indication: Immunosuppressant drug therapy
     Dosage: UNK
     Route: 065
  2. ALEMTUZUMAB [Concomitant]
     Active Substance: ALEMTUZUMAB
     Indication: Immunosuppressant drug therapy
     Dosage: UNK
  3. TACROLIMUS [Concomitant]
     Active Substance: TACROLIMUS
     Indication: Immunosuppressant drug therapy
     Dosage: UNK
  4. AZATHIOPRINE [Concomitant]
     Active Substance: AZATHIOPRINE
     Indication: Immunosuppressant drug therapy
     Dosage: UNK
  5. MYCOPHENOLIC ACID [Concomitant]
     Active Substance: MYCOPHENOLIC ACID
     Indication: Immunosuppressant drug therapy
     Dosage: UNK

REACTIONS (21)
  - Infection [Fatal]
  - Cardiovascular disorder [Fatal]
  - Hepatic failure [Fatal]
  - Multiple organ dysfunction syndrome [Fatal]
  - Completed suicide [Fatal]
  - Renal failure [Fatal]
  - Graft versus host disease [Fatal]
  - Injury [Fatal]
  - Treatment noncompliance [Fatal]
  - Diabetes mellitus [Fatal]
  - Post transplant lymphoproliferative disorder [Fatal]
  - Haemorrhage [Fatal]
  - Respiratory disorder [Fatal]
  - Death [Fatal]
  - Cerebrovascular disorder [Fatal]
  - Pancreatitis [Unknown]
  - Thrombosis [Unknown]
  - Neoplasm malignant [Unknown]
  - Transplant rejection [Unknown]
  - Implant site discharge [Unknown]
  - Immune-mediated adverse reaction [Unknown]
